FAERS Safety Report 4657163-2 (Version None)
Quarter: 2005Q2

REPORT INFORMATION
  Report Type: 
  Country: None (occurrence: None)
  Receive Date: 20050408
  Receipt Date: 20050225
  Transmission Date: 20051028
  Serious: No
  Sender: FDA-Public Use
  Company Number: 230711K05USA

PATIENT
  Age: 58 Year
  Sex: Female

DRUGS (5)
  1. REBIF [Suspect]
     Indication: MULTIPLE SCLEROSIS
     Dates: start: 20050216, end: 20050221
  2. CLONAZEPAM [Concomitant]
  3. MIRAPEX [Concomitant]
  4. AMBIEN [Concomitant]
  5. NEURONTIN [Concomitant]

REACTIONS (3)
  - CHEST DISCOMFORT [None]
  - HYPOVENTILATION [None]
  - PAIN [None]
